FAERS Safety Report 14963386 (Version 1)
Quarter: 2018Q2

REPORT INFORMATION
  Report Type: Spontaneous
  Country: US (occurrence: US)
  Receive Date: 20180601
  Receipt Date: 20180601
  Transmission Date: 20180711
  Serious: No
  Sender: FDA-Public Use
  Company Number: US-ABBVIE-17P-163-2147699-00

PATIENT
  Sex: Male

DRUGS (10)
  1. PREVACID [Concomitant]
     Active Substance: LANSOPRAZOLE
     Indication: GASTROOESOPHAGEAL REFLUX DISEASE
     Route: 065
  2. IPATROPRIUM [Concomitant]
     Indication: RHINITIS
     Route: 065
  3. TYLENOL [Concomitant]
     Active Substance: ACETAMINOPHEN
     Indication: PAIN
     Route: 065
  4. SOMA [Concomitant]
     Active Substance: CARISOPRODOL
     Indication: INSOMNIA
  5. GABAPENTIN. [Suspect]
     Active Substance: GABAPENTIN
     Indication: PERIODIC LIMB MOVEMENT DISORDER
     Route: 065
  6. CRESTOR [Concomitant]
     Active Substance: ROSUVASTATIN CALCIUM
     Indication: BLOOD CHOLESTEROL INCREASED
     Route: 065
  7. ZOLPIDEM [Concomitant]
     Active Substance: ZOLPIDEM\ZOLPIDEM TARTRATE
     Indication: INSOMNIA
     Route: 065
  8. DRONABINOL. [Suspect]
     Active Substance: DRONABINOL
     Indication: AUTONOMIC NERVOUS SYSTEM IMBALANCE
     Route: 048
     Dates: start: 201706, end: 2017
  9. DRONABINOL. [Suspect]
     Active Substance: DRONABINOL
     Route: 065
     Dates: start: 2017
  10. SOMA [Concomitant]
     Active Substance: CARISOPRODOL
     Indication: PAIN
     Route: 065

REACTIONS (4)
  - Nausea [Not Recovered/Not Resolved]
  - Ex-tobacco user [Unknown]
  - Off label use [Not Recovered/Not Resolved]
  - Neuropathy peripheral [Not Recovered/Not Resolved]

NARRATIVE: CASE EVENT DATE: 2017
